FAERS Safety Report 15956556 (Version 1)
Quarter: 2019Q1

REPORT INFORMATION
  Report Type: Spontaneous
  Country: US (occurrence: US)
  Receive Date: 20190213
  Receipt Date: 20190213
  Transmission Date: 20190417
  Serious: No
  Sender: FDA-Public Use
  Company Number: US-HORIZON-PEN-0127-2019

PATIENT
  Age: 65 Year
  Sex: Male

DRUGS (2)
  1. PENNSAID [Suspect]
     Active Substance: DICLOFENAC SODIUM
     Indication: PAIN IN EXTREMITY
     Dosage: 1 PUMP TWICE A DAY
  2. LOSARTAN. [Concomitant]
     Active Substance: LOSARTAN

REACTIONS (4)
  - Insurance issue [Unknown]
  - Inability to afford medication [Unknown]
  - Gait disturbance [Unknown]
  - Off label use [Unknown]

NARRATIVE: CASE EVENT DATE: 2018
